FAERS Safety Report 18940467 (Version 7)
Quarter: 2021Q3

REPORT INFORMATION
  Report Type: Report from Study
  Country: GB (occurrence: GB)
  Receive Date: 20210225
  Receipt Date: 20210906
  Transmission Date: 20211014
  Serious: Yes (Hospitalization, Other)
  Sender: FDA-Public Use
  Company Number: GB-NOVOPROD-788595

PATIENT
  Age: 52 Year
  Sex: Female
  Weight: 117.4 kg

DRUGS (3)
  1. HYOSCINE BUTYLBROMIDE [Concomitant]
     Active Substance: BUTYLSCOPOLAMINE BROMIDE
     Indication: PRODUCT USED FOR UNKNOWN INDICATION
     Dosage: 10.0 MG
     Route: 048
     Dates: start: 20210108
  2. LIRAGLUTIDE 6MG/ML PDS290 [Suspect]
     Active Substance: LIRAGLUTIDE
     Indication: OBESITY
     Dosage: 3.0 MG
     Route: 058
     Dates: start: 20191217, end: 20200402
  3. LIRAGLUTIDE 6MG/ML PDS290 [Suspect]
     Active Substance: LIRAGLUTIDE
     Dosage: 2.4 MG
     Dates: start: 20200403, end: 20200428

REACTIONS (3)
  - Obstructive pancreatitis [Recovered/Resolved with Sequelae]
  - Cholelithiasis [Not Recovered/Not Resolved]
  - Pancreatitis [Recovered/Resolved with Sequelae]

NARRATIVE: CASE EVENT DATE: 20200401
